FAERS Safety Report 20757300 (Version 2)
Quarter: 2022Q4

REPORT INFORMATION
  Report Type: Spontaneous
  Country: FR (occurrence: FR)
  Receive Date: 20220427
  Receipt Date: 20221213
  Transmission Date: 20230113
  Serious: Yes (Hospitalization, Other)
  Sender: FDA-Public Use
  Company Number: FR-GLAXOSMITHKLINE-FR2022EME067718

PATIENT

DRUGS (3)
  1. BELANTAMAB MAFODOTIN [Suspect]
     Active Substance: BELANTAMAB MAFODOTIN
     Indication: Plasma cell myeloma
     Dosage: 2.5 MG/KG
     Dates: start: 20201218
  2. VALACYCLOVIR HYDROCHLORIDE [Concomitant]
     Active Substance: VALACYCLOVIR HYDROCHLORIDE
     Indication: Product used for unknown indication
     Dosage: UNK
  3. PARAC [Concomitant]

REACTIONS (3)
  - Lung disorder [Recovered/Resolved]
  - Thrombocytopenia [Recovered/Resolved]
  - General physical condition abnormal [Recovered/Resolved]

NARRATIVE: CASE EVENT DATE: 20210104
